FAERS Safety Report 7395177-2 (Version None)
Quarter: 2011Q2

REPORT INFORMATION
  Report Type: 
  Country: None (occurrence: None)
  Receive Date: 20110405
  Receipt Date: 20110328
  Transmission Date: 20111010
  Serious: Yes (Death, Hospitalization, Other)
  Sender: FDA-Public Use
  Company Number: US-GENZYME-CLOF-1001490

PATIENT
  Sex: Male
  Weight: 77 kg

DRUGS (8)
  1. CIPRO [Concomitant]
     Indication: PROPHYLAXIS
     Dosage: 500 MG, BID
     Route: 048
     Dates: end: 20110309
  2. CLOLAR [Suspect]
     Indication: ACUTE MYELOID LEUKAEMIA
     Dosage: 40 MG, QDX5
     Route: 042
     Dates: start: 20110305, end: 20110309
  3. MITOXANTRONE [Suspect]
     Indication: ACUTE MYELOID LEUKAEMIA
     Dosage: 16 MG, 3X/W ON 04 MAR, 06 MAR AND 07 MAR 2011
     Route: 042
     Dates: start: 20110304, end: 20110307
  4. FLOMAX [Concomitant]
     Indication: NEUROGENIC BLADDER
     Dosage: 0.4 MG, QD
     Route: 048
  5. ALLOPURINOL [Concomitant]
     Indication: PROPHYLAXIS
     Dosage: 300 UNK, QD
     Route: 048
     Dates: start: 20110301
  6. PROTONIX [Concomitant]
     Indication: PRODUCT USED FOR UNKNOWN INDICATION
     Dosage: 40 MG, QD
     Route: 048
  7. GABAPENTIN [Concomitant]
     Indication: PAIN IN EXTREMITY
     Dosage: 300 MG, TID
     Route: 048
  8. ETOPOSIDE [Suspect]
     Indication: ACUTE MYELOID LEUKAEMIA
     Dosage: 200 MG, QD; PATIENT RECEIVED DOSES ON 04 MAR, 05 MAR (2330), 07 MAR (0100), 08 MAR, AND 09 MAR 2011
     Route: 042
     Dates: start: 20110304, end: 20110309

REACTIONS (7)
  - FUNGAL INFECTION [None]
  - ACUTE MYELOID LEUKAEMIA RECURRENT [None]
  - DIARRHOEA [None]
  - FEBRILE NEUTROPENIA [None]
  - ENTERITIS [None]
  - HYPOXIA [None]
  - PAIN [None]
